FAERS Safety Report 11862395 (Version 1)
Quarter: 2015Q4

REPORT INFORMATION
  Report Type: Spontaneous
  Country: TR (occurrence: TR)
  Receive Date: 20151223
  Receipt Date: 20151223
  Transmission Date: 20160305
  Serious: Yes (Other)
  Sender: FDA-Public Use
  Company Number: TR-SUN PHARMACEUTICAL INDUSTRIES LTD-2015RR-108000

PATIENT

DRUGS (1)
  1. ALPRAZOLAM. [Suspect]
     Active Substance: ALPRAZOLAM
     Indication: GENERALISED ANXIETY DISORDER
     Dosage: 1 MG, DAILY
     Route: 065

REACTIONS (3)
  - Suicidal ideation [Recovered/Resolved]
  - Paradoxical drug reaction [Unknown]
  - Self injurious behaviour [Recovered/Resolved]
